FAERS Safety Report 7724576-1 (Version None)
Quarter: 2011Q3

REPORT INFORMATION
  Report Type: 
  Country: None (occurrence: None)
  Receive Date: 20110901
  Receipt Date: 20110826
  Transmission Date: 20111222
  Serious: Yes (Death, Hospitalization)
  Sender: FDA-Public Use
  Company Number: FR-CELGENEUS-056-50794-11083179

PATIENT
  Sex: Female

DRUGS (4)
  1. REVLIMID [Suspect]
     Dosage: 5 MILLIGRAM
     Route: 048
     Dates: start: 20110404
  2. REVLIMID [Suspect]
     Dosage: 5 MILLIGRAM
     Route: 048
     Dates: start: 20110704, end: 20110724
  3. VIDAZA [Suspect]
     Dosage: 50 MILLIGRAM
     Route: 041
     Dates: start: 20110404
  4. VIDAZA [Suspect]
     Dosage: 50 MILLIGRAM
     Route: 041
     Dates: start: 20110704, end: 20110708

REACTIONS (2)
  - BRONCHOPULMONARY ASPERGILLOSIS [None]
  - PNEUMOCYSTIS JIROVECI PNEUMONIA [None]
